FAERS Safety Report 18388679 (Version 2)
Quarter: 2020Q4

REPORT INFORMATION
  Report Type: Spontaneous
  Country: US (occurrence: US)
  Receive Date: 20201015
  Receipt Date: 20201027
  Transmission Date: 20210114
  Serious: Yes (Other)
  Sender: FDA-Public Use
  Company Number: US-TEVA-2020-US-1837487

PATIENT
  Age: 39 Year
  Sex: Male

DRUGS (10)
  1. CLINDAMYCIN. [Suspect]
     Active Substance: CLINDAMYCIN
     Indication: HIDRADENITIS
     Dosage: 150 MILLIGRAM DAILY;
     Route: 048
     Dates: start: 2019, end: 2019
  2. DOXYCYCLINE. [Suspect]
     Active Substance: DOXYCYCLINE
     Indication: HIDRADENITIS
     Dosage: 200 MILLIGRAM DAILY;
     Route: 048
     Dates: start: 2019, end: 2019
  3. MOXIFLOXACIN. [Concomitant]
     Active Substance: MOXIFLOXACIN
     Indication: ELEPHANTIASIS
  4. RIFAMPIN. [Concomitant]
     Active Substance: RIFAMPIN
     Indication: HIDRADENITIS
     Dosage: 600 MILLIGRAM DAILY;
     Route: 065
  5. RIFAMPIN. [Concomitant]
     Active Substance: RIFAMPIN
     Indication: ELEPHANTIASIS
  6. CLINDAMYCIN. [Suspect]
     Active Substance: CLINDAMYCIN
     Indication: ELEPHANTIASIS
     Dosage: 600 MILLIGRAM DAILY;
     Route: 048
     Dates: start: 2019, end: 2019
  7. METRONIDAZOLE. [Concomitant]
     Active Substance: METRONIDAZOLE
     Indication: HIDRADENITIS
     Dosage: 1500 MILLIGRAM DAILY; THREE TIMES A DAY
     Route: 065
  8. METRONIDAZOLE. [Concomitant]
     Active Substance: METRONIDAZOLE
     Indication: ELEPHANTIASIS
  9. MOXIFLOXACIN. [Concomitant]
     Active Substance: MOXIFLOXACIN
     Indication: HIDRADENITIS
     Dosage: 400 MILLIGRAM DAILY;
     Route: 065
  10. DOXYCYCLINE. [Suspect]
     Active Substance: DOXYCYCLINE
     Indication: ELEPHANTIASIS

REACTIONS (2)
  - Drug ineffective [Unknown]
  - Tinnitus [Unknown]

NARRATIVE: CASE EVENT DATE: 2019
